FAERS Safety Report 8052619-7 (Version None)
Quarter: 2012Q1

REPORT INFORMATION
  Report Type: 
  Country: None (occurrence: None)
  Receive Date: 20120118
  Receipt Date: 20120110
  Transmission Date: 20120608
  Serious: Yes (Other)
  Sender: FDA-Public Use
  Company Number: JP-ASTELLAS-2011JP009200

PATIENT
  Age: 76 Year
  Sex: Female

DRUGS (6)
  1. ADELAVIN [Concomitant]
     Dosage: 2 ML, UNKNOWN/D
     Route: 041
  2. FUNGUARD [Suspect]
     Dosage: 100 MG, UNKNOWN/D
     Route: 041
     Dates: start: 20111201
  3. TATHION [Concomitant]
     Dosage: 400 MG, UNKNOWN/D
     Route: 041
  4. REMINARON [Concomitant]
     Dosage: 1000 MG, UNKNOWN/D
     Route: 041
     Dates: end: 20111105
  5. NEOPHAGEN [Concomitant]
     Dosage: 100 MG, UNKNOWN/D
     Route: 041
  6. PRODIF [Suspect]
     Dosage: 400 MG, UNKNOWN/D
     Route: 041
     Dates: start: 20111127, end: 20111130

REACTIONS (2)
  - PLATELET COUNT DECREASED [None]
  - RED BLOOD CELL COUNT DECREASED [None]
